FAERS Safety Report 24644523 (Version 1)
Quarter: 2024Q4

REPORT INFORMATION
  Report Type: Report from Study
  Country: US (occurrence: US)
  Receive Date: 20241121
  Receipt Date: 20241121
  Transmission Date: 20250115
  Serious: Yes (Death, Hospitalization, Other)
  Sender: ABBVIE
  Company Number: US-ABBVIE-6010463

PATIENT
  Age: 63 Year
  Sex: Male

DRUGS (1)
  1. HUMIRA [Suspect]
     Active Substance: ADALIMUMAB
     Indication: Product used for unknown indication
     Dosage: CITRATE FREE
     Route: 058
     Dates: start: 20241105, end: 20241106

REACTIONS (10)
  - Death [Fatal]
  - Dyspnoea [Not Recovered/Not Resolved]
  - Back pain [Recovered/Resolved]
  - Fatigue [Unknown]
  - Movement disorder [Unknown]
  - Pulmonary thrombosis [Unknown]
  - Back pain [Recovering/Resolving]
  - Cardiac ventricular thrombosis [Unknown]
  - Thrombosis mesenteric vessel [Unknown]
  - Oxygen saturation decreased [Unknown]

NARRATIVE: CASE EVENT DATE: 20241101
